FAERS Safety Report 7077286-0 (Version None)
Quarter: 2010Q4

REPORT INFORMATION
  Report Type: 
  Country: None (occurrence: None)
  Receive Date: 20101101
  Receipt Date: 20101020
  Transmission Date: 20110411
  Serious: Yes (Other)
  Sender: FDA-Public Use
  Company Number: US-AMGEN-USASP2010001019

PATIENT

DRUGS (19)
  1. EPOGEN [Suspect]
     Indication: RENAL FAILURE CHRONIC
     Dosage: 10000 IU, 3 TIMES/WK
     Dates: start: 20080401
  2. PROCRIT [Concomitant]
     Indication: RENAL FAILURE CHRONIC
     Dosage: UNK
     Dates: end: 20080401
  3. ZEMPLAR [Concomitant]
     Dosage: UNK
  4. RENVELA [Concomitant]
  5. IRON [Concomitant]
     Dates: end: 20100101
  6. SODIUM BICARBONATE [Concomitant]
  7. POTASSIUM CHLORIDE [Concomitant]
  8. MEGESTROL ACETATE [Concomitant]
  9. SINGULAIR [Concomitant]
  10. ZANTAC                             /00550801/ [Concomitant]
  11. PREVACID [Concomitant]
  12. FLUTICASONE PROPIONATE [Concomitant]
  13. ALBUTEROL [Concomitant]
  14. MUPIROCIN [Concomitant]
  15. TRIAMCINOLONE [Concomitant]
  16. FLUOCINONIDE [Concomitant]
  17. TRETINOIN [Concomitant]
  18. ZINC OXIDE [Concomitant]
  19. BENEPROTEIN [Concomitant]

REACTIONS (2)
  - BONE MARROW FAILURE [None]
  - DRUG INEFFECTIVE [None]
